FAERS Safety Report 8990848 (Version 1)
Quarter: 2012Q4

REPORT INFORMATION
  Report Type: Spontaneous
  Country: US (occurrence: None)
  Receive Date: 20121226
  Receipt Date: 20121226
  Transmission Date: 20130627
  Serious: Yes (Other)
  Sender: FDA-Public Use
  Company Number: None

PATIENT
  Age: 60 Year
  Sex: Female
  Weight: 74.84 kg

DRUGS (1)
  1. CIPRO [Suspect]
     Indication: DIVERTICULITIS
     Dosage: 500 mg twice a day
     Dates: start: 20110926, end: 20111003

REACTIONS (4)
  - Abdominal pain [None]
  - Dysstasia [None]
  - Gastrointestinal inflammation [None]
  - Haematochezia [None]
